FAERS Safety Report 8507139-X (Version None)
Quarter: 2012Q3

REPORT INFORMATION
  Report Type: 
  Country: None (occurrence: None)
  Receive Date: 20120712
  Receipt Date: 20120702
  Transmission Date: 20120928
  Serious: Yes (Other)
  Sender: FDA-Public Use
  Company Number: DE-SANOFI-AVENTIS-2012SA047133

PATIENT
  Age: 44 Year
  Sex: Female

DRUGS (1)
  1. TAXOTERE [Suspect]
     Dosage: DOSE:160 MILLIGRAM(S)/MILLILITRE
     Route: 042

REACTIONS (2)
  - QUADRIPLEGIA [None]
  - PAIN [None]
